FAERS Safety Report 11709414 (Version 1)
Quarter: 2015Q4

REPORT INFORMATION
  Report Type: Spontaneous
  Country: US (occurrence: US)
  Receive Date: 20151104
  Receipt Date: 20151104
  Transmission Date: 20160304
  Serious: No
  Sender: FDA-Public Use
  Company Number: US-ELI_LILLY_AND_COMPANY-US201109002567

PATIENT
  Sex: Female

DRUGS (2)
  1. FEMARA [Concomitant]
     Active Substance: LETROZOLE
  2. FORTEO [Suspect]
     Active Substance: TERIPARATIDE
     Indication: OSTEOPENIA
     Dosage: UNK UNK, QD
     Route: 065
     Dates: end: 20110901

REACTIONS (6)
  - Intentional product misuse [Unknown]
  - Off label use [Unknown]
  - Pain in extremity [Recovering/Resolving]
  - Myalgia [Unknown]
  - Limb discomfort [Recovering/Resolving]
  - Muscle spasms [Unknown]
